FAERS Safety Report 9927332 (Version 1)
Quarter: 2014Q1

REPORT INFORMATION
  Report Type: Spontaneous
  Country: US (occurrence: US)
  Receive Date: 20140226
  Receipt Date: 20140226
  Transmission Date: 20141002
  Serious: No
  Sender: FDA-Public Use
  Company Number: US-GILEAD-2014-0095079

PATIENT
  Age: 60 Year
  Sex: Male

DRUGS (6)
  1. SOVALDI [Suspect]
     Indication: CHRONIC HEPATITIS C
     Dosage: 400 MG, UNK
     Route: 065
     Dates: start: 20131226
  2. RIBAVIRIN [Concomitant]
  3. PREDNISONE [Concomitant]
  4. LYRICA [Concomitant]
  5. BUPROPION [Concomitant]
  6. LISINOPRIL [Concomitant]

REACTIONS (3)
  - Hypoaesthesia [Unknown]
  - Insomnia [Unknown]
  - Dyspepsia [Unknown]
